FAERS Safety Report 17293971 (Version 1)
Quarter: 2020Q1

REPORT INFORMATION
  Report Type: Spontaneous
  Country: US (occurrence: US)
  Receive Date: 20200121
  Receipt Date: 20200121
  Transmission Date: 20200409
  Serious: No
  Sender: FDA-Public Use
  Company Number: US-SA-2020SA013678

PATIENT
  Age: 41 Year
  Sex: Female

DRUGS (2)
  1. PLAVIX [Suspect]
     Active Substance: CLOPIDOGREL BISULFATE
     Dosage: 75 MG, QOD
     Route: 065
  2. PLAVIX [Suspect]
     Active Substance: CLOPIDOGREL BISULFATE
     Dosage: 75 MG, QD
     Route: 065

REACTIONS (1)
  - Contusion [Unknown]
